FAERS Safety Report 18773722 (Version 1)
Quarter: 2021Q1

REPORT INFORMATION
  Report Type: Spontaneous
  Country: US (occurrence: US)
  Receive Date: 20210122
  Receipt Date: 20210122
  Transmission Date: 20210419
  Serious: Yes (Hospitalization)
  Sender: FDA-Public Use
  Company Number: None

PATIENT
  Age: 64 Year
  Sex: Male
  Weight: 89 kg

DRUGS (1)
  1. CISPLATIN. [Suspect]
     Active Substance: CISPLATIN
     Dates: end: 20201216

REACTIONS (11)
  - Mental status changes [None]
  - Chest pain [None]
  - Hypoxia [None]
  - Dyspnoea [None]
  - Pneumonia [None]
  - Fatigue [None]
  - Right ventricular dysfunction [None]
  - Nasopharyngitis [None]
  - Pulmonary embolism [None]
  - Hypotension [None]
  - Hyperhidrosis [None]

NARRATIVE: CASE EVENT DATE: 20210120
